FAERS Safety Report 8971496 (Version 2)
Quarter: 2013Q2

REPORT INFORMATION
  Report Type: Spontaneous
  Country: CA (occurrence: CA)
  Receive Date: 20121217
  Receipt Date: 20130411
  Transmission Date: 20140414
  Serious: Yes (Other)
  Sender: FDA-Public Use
  Company Number: CA-ABBOTT-12P-028-1018740-00

PATIENT
  Age: 55 Year
  Sex: Female
  Weight: 49 kg

DRUGS (8)
  1. BIAXIN [Suspect]
     Indication: PRODUCT USED FOR UNKNOWN INDICATION
  2. BACTRIM [Interacting]
  3. CARBOPLENTIN [Interacting]
  4. DILANTIN [Interacting]
     Indication: PRODUCT USED FOR UNKNOWN INDICATION
     Route: 048
  5. DILANTIN [Interacting]
     Route: 048
  6. PHENOBARBITAL [Interacting]
  7. MINOCYCLINE [Interacting]
  8. SYNTHROID [Concomitant]
     Indication: PRODUCT USED FOR UNKNOWN INDICATION

REACTIONS (36)
  - Cervix carcinoma [Recovered/Resolved]
  - Abnormal sleep-related event [Recovered/Resolved]
  - Anticonvulsant drug level decreased [Recovered/Resolved]
  - Anticonvulsant drug level increased [Recovered/Resolved]
  - Areflexia [Recovered/Resolved]
  - Asthenia [Recovered/Resolved]
  - Blood pressure decreased [Recovered/Resolved]
  - Bradyphrenia [Recovered/Resolved]
  - Brain injury [Recovered/Resolved]
  - Cholecystitis acute [Recovered/Resolved]
  - Crying [Recovered/Resolved]
  - Drop attacks [Recovered/Resolved]
  - Drug effect increased [Recovered/Resolved]
  - Drug interaction [Recovered/Resolved]
  - Dysarthria [Recovered/Resolved]
  - Dysphagia [Recovered/Resolved]
  - Fall [Recovered/Resolved]
  - Feeling abnormal [Recovered/Resolved]
  - Gait disturbance [Recovered/Resolved]
  - Hypoaesthesia [Recovered/Resolved]
  - Increased appetite [Recovered/Resolved]
  - Lyme disease [Recovered/Resolved]
  - Mental impairment [Recovered/Resolved]
  - Muscular weakness [Recovered/Resolved]
  - Nausea [Recovered/Resolved]
  - Nervousness [Recovered/Resolved]
  - Nystagmus [Recovered/Resolved]
  - Obsessive-compulsive disorder [Recovered/Resolved]
  - Pain in extremity [Recovered/Resolved]
  - Paraesthesia [Recovered/Resolved]
  - Personality disorder [Recovered/Resolved]
  - Somnolence [Recovered/Resolved]
  - Speech disorder [Recovered/Resolved]
  - Toxicity to various agents [Recovered/Resolved]
  - Weight decreased [Recovered/Resolved]
  - Dyskinesia [Recovered/Resolved]
